FAERS Safety Report 7554902-8 (Version None)
Quarter: 2011Q2

REPORT INFORMATION
  Report Type: 
  Country: None (occurrence: None)
  Receive Date: 20110617
  Receipt Date: 20110613
  Transmission Date: 20111010
  Serious: Yes (Death, Hospitalization, Other)
  Sender: FDA-Public Use
  Company Number: US-BRISTOL-MYERS SQUIBB COMPANY-15830078

PATIENT
  Age: 65 Year
  Sex: Male
  Weight: 65 kg

DRUGS (18)
  1. VINCRISTINE [Suspect]
     Indication: DIFFUSE LARGE B-CELL LYMPHOMA
     Route: 042
     Dates: start: 20090122, end: 20090312
  2. NEXIUM [Concomitant]
     Dates: start: 20081216
  3. ZOFRAN [Concomitant]
     Dates: start: 20081229
  4. MILK OF MAGNESIA TAB [Concomitant]
     Dates: start: 20090101
  5. CIPROFLOXACIN HCL [Concomitant]
     Indication: INFECTION PROPHYLAXIS
     Dates: start: 20090319
  6. DOXORUBICIN HCL [Suspect]
     Indication: DIFFUSE LARGE B-CELL LYMPHOMA
     Route: 042
     Dates: start: 20090122, end: 20090312
  7. COUMADIN [Concomitant]
     Indication: PROPHYLAXIS
     Dates: start: 20090123
  8. DOCUSATE SODIUM [Concomitant]
     Dates: start: 20090129
  9. CYCLOPHOSPHAMIDE [Suspect]
     Indication: DIFFUSE LARGE B-CELL LYMPHOMA
     Route: 042
     Dates: start: 20090122, end: 20090312
  10. RITUXIMAB [Suspect]
     Indication: DIFFUSE LARGE B-CELL LYMPHOMA
     Route: 042
     Dates: start: 20090122, end: 20090312
  11. MAGNESIUM CITRATE [Concomitant]
     Dates: start: 20090101
  12. ENZASTAURIN [Suspect]
     Indication: DIFFUSE LARGE B-CELL LYMPHOMA
     Dosage: 23JAN09-23JAN09,24JAN09-21MAR09;57DAYS;500MG/DAY
     Route: 048
     Dates: start: 20090123, end: 20090321
  13. PREDNISONE [Suspect]
     Indication: DIFFUSE LARGE B-CELL LYMPHOMA
     Route: 048
     Dates: start: 20090126, end: 20090316
  14. REGLAN [Concomitant]
     Dates: start: 20081216
  15. MIRALAX [Concomitant]
     Dates: start: 20090101
  16. KYTRIL [Concomitant]
     Dates: start: 20090122
  17. ALLOPURINOL [Concomitant]
     Indication: PROPHYLAXIS
     Dates: start: 20090122
  18. AMBIEN [Concomitant]
     Dates: start: 20090129

REACTIONS (5)
  - ASTHENIA [None]
  - FEBRILE NEUTROPENIA [None]
  - INFECTION [None]
  - PANCYTOPENIA [None]
  - RENAL FAILURE ACUTE [None]
